FAERS Safety Report 13306498 (Version 1)
Quarter: 2017Q1

REPORT INFORMATION
  Report Type: Other
  Country: DE (occurrence: DE)
  Receive Date: 20170308
  Receipt Date: 20170308
  Transmission Date: 20170428
  Serious: Yes (Hospitalization)
  Sender: FDA-Public Use
  Company Number: DE-CELLTRION INC.-2017DE002629

PATIENT

DRUGS (1)
  1. INFLIXIMAB HOSPIRA [Suspect]
     Active Substance: INFLIXIMAB
     Indication: COLITIS ULCERATIVE
     Dosage: 380 MG, CYCLIC
     Route: 042
     Dates: start: 20140630

REACTIONS (1)
  - Nasal septum deviation [Recovered/Resolved]

NARRATIVE: CASE EVENT DATE: 20161123
